FAERS Safety Report 18442201 (Version 3)
Quarter: 2021Q2

REPORT INFORMATION
  Report Type: Spontaneous
  Country: CA (occurrence: CA)
  Receive Date: 20201029
  Receipt Date: 20210511
  Transmission Date: 20210717
  Serious: Yes (Other)
  Sender: FDA-Public Use
  Company Number: CA-SAMSUNG BIOEPIS-SB-2020-32716

PATIENT
  Age: 52 Year
  Sex: Male

DRUGS (5)
  1. MEZAVANT/MESALAMINE [Concomitant]
     Active Substance: MESALAMINE
     Indication: PRODUCT USED FOR UNKNOWN INDICATION
     Dosage: UNKNOWN, DELAYED AND EXTENDED RELEASE TABLET
     Route: 065
  2. MEZAVANT/MESALAMINE [Concomitant]
     Active Substance: MESALAMINE
     Route: 065
  3. INFLIXIMAB [Suspect]
     Active Substance: INFLIXIMAB
     Route: 042
  4. INFLIXIMAB [Suspect]
     Active Substance: INFLIXIMAB
     Indication: COLITIS ULCERATIVE
     Route: 042
  5. PREDNISONE. [Concomitant]
     Active Substance: PREDNISONE
     Indication: PRODUCT USED FOR UNKNOWN INDICATION
     Route: 065

REACTIONS (9)
  - Drug level below therapeutic [Unknown]
  - Body temperature decreased [Unknown]
  - Intentional product use issue [Unknown]
  - Weight decreased [Unknown]
  - Cough [Unknown]
  - Condition aggravated [Unknown]
  - COVID-19 [Unknown]
  - Off label use [Unknown]
  - Product use issue [Unknown]
